FAERS Safety Report 9292915 (Version 1)
Quarter: 2013Q2

REPORT INFORMATION
  Report Type: Spontaneous
  Country: US (occurrence: None)
  Receive Date: 20130515
  Receipt Date: 20130515
  Transmission Date: 20140414
  Serious: Yes (Other)
  Sender: FDA-Public Use
  Company Number: None

PATIENT
  Age: 39 Year
  Sex: Male

DRUGS (1)
  1. NEPRINOL AFD [Suspect]
     Indication: THROMBOSIS
     Dosage: 2 CAPSULES

REACTIONS (2)
  - Asthenia [None]
  - Product quality issue [None]
